FAERS Safety Report 11309695 (Version 1)
Quarter: 2015Q3

REPORT INFORMATION
  Report Type: Spontaneous
  Country: US (occurrence: US)
  Receive Date: 20150724
  Receipt Date: 20150724
  Transmission Date: 20151125
  Serious: Yes (Other)
  Sender: FDA-Public Use
  Company Number: US-BAYER-2015-378604

PATIENT
  Age: 57 Year
  Sex: Male
  Weight: 141.5 kg

DRUGS (1)
  1. ALEVE [Suspect]
     Active Substance: NAPROXEN SODIUM
     Indication: NEURALGIA
     Dosage: UNK

REACTIONS (2)
  - Haemorrhoidal haemorrhage [Unknown]
  - Haematochezia [Unknown]
